FAERS Safety Report 11099698 (Version 1)
Quarter: 2015Q2

REPORT INFORMATION
  Report Type: Spontaneous
  Country: GB (occurrence: None)
  Receive Date: 20150506
  Receipt Date: 20150506
  Transmission Date: 20150821
  Serious: Yes (Other)
  Sender: FDA-Public Use
  Company Number: BR-TORRENT-00002904

PATIENT
  Age: 23 Year
  Sex: Female

DRUGS (1)
  1. VENLIFT OD (INN:VENLAFAXINE HYDROCHLORIDE) [Suspect]
     Active Substance: VENLAFAXINE HYDROCHLORIDE
     Indication: ANXIETY
     Dosage: ONCE DAILY/ORAL, ORAL
     Route: 048
     Dates: start: 20150329

REACTIONS (7)
  - Somnolence [None]
  - Proctalgia [None]
  - Fatigue [None]
  - Disorientation [None]
  - Haematochezia [None]
  - Faeces hard [None]
  - Abnormal dreams [None]
